FAERS Safety Report 8906368 (Version 1)
Quarter: 2012Q4

REPORT INFORMATION
  Report Type: Spontaneous
  Country: US (occurrence: None)
  Receive Date: 20121108
  Receipt Date: 20121108
  Transmission Date: 20130627
  Serious: Yes (Hospitalization)
  Sender: FDA-Public Use
  Company Number: DKLU1086111

PATIENT
  Age: 16 Year
  Sex: Male

DRUGS (1)
  1. ONFI (CLOBAZAM) (CLOBAZAM) (10 MG, TABLET) [Suspect]
     Indication: EPILEPSY
     Dates: start: 201209

REACTIONS (1)
  - Drug resistance [None]
